FAERS Safety Report 8416732-4 (Version None)
Quarter: 2012Q2

REPORT INFORMATION
  Report Type: 
  Country: None (occurrence: None)
  Receive Date: 20120606
  Receipt Date: 20120531
  Transmission Date: 20120825
  Serious: Yes (Other)
  Sender: FDA-Public Use
  Company Number: US-PFIZER INC-2012132101

PATIENT
  Sex: Female
  Weight: 73 kg

DRUGS (11)
  1. VENLAFAXINE HCL [Suspect]
     Indication: NERVOUS SYSTEM DISORDER
  2. DEXLANSOPRAZOLE [Suspect]
     Indication: GASTROOESOPHAGEAL REFLUX DISEASE
     Dosage: 60 MG, 2X/DAY
     Route: 048
  3. VENLAFAXINE HCL [Suspect]
     Indication: AGITATION
  4. DEXLANSOPRAZOLE [Suspect]
     Indication: OESOPHAGEAL DISORDER
     Dosage: 60 MG, 1X/DAY
     Route: 048
  5. NEXIUM [Suspect]
     Indication: DYSPEPSIA
  6. VENLAFAXINE HCL [Suspect]
     Indication: DEPRESSION
     Dosage: 150 MG, 2X/DAY
     Route: 048
  7. VENLAFAXINE HCL [Suspect]
     Indication: BIPOLAR DISORDER
  8. VENLAFAXINE HCL [Suspect]
     Indication: PANIC ATTACK
  9. VENLAFAXINE HCL [Suspect]
     Indication: ANXIETY
  10. NEXIUM [Suspect]
     Indication: GASTROOESOPHAGEAL REFLUX DISEASE
     Dosage: UNK
  11. VENLAFAXINE HCL [Suspect]
     Indication: SLEEP DISORDER

REACTIONS (6)
  - EAR PAIN [None]
  - LUNG DISORDER [None]
  - OROPHARYNGEAL PAIN [None]
  - INCREASED UPPER AIRWAY SECRETION [None]
  - NASOPHARYNGITIS [None]
  - PHARYNGEAL HAEMORRHAGE [None]
